FAERS Safety Report 7589011-5 (Version None)
Quarter: 2011Q3

REPORT INFORMATION
  Report Type: 
  Country: None (occurrence: None)
  Receive Date: 20110705
  Receipt Date: 20110621
  Transmission Date: 20111222
  Serious: Yes (Hospitalization)
  Sender: FDA-Public Use
  Company Number: US-JNJFOC-20110411670

PATIENT
  Sex: Female
  Weight: 73.48 kg

DRUGS (10)
  1. REMICADE [Suspect]
     Indication: CROHN'S DISEASE
     Route: 042
     Dates: start: 20060428
  2. REMICADE [Suspect]
     Route: 042
     Dates: start: 20060901
  3. REMICADE [Suspect]
     Route: 042
     Dates: start: 20071120
  4. ANTIHISTAMINES [Concomitant]
     Indication: PREMEDICATION
  5. REMICADE [Suspect]
     Route: 042
     Dates: start: 20070406
  6. ACETAMINOPHEN [Concomitant]
     Indication: PREMEDICATION
  7. MESALAMINE [Concomitant]
  8. REMICADE [Suspect]
     Route: 042
     Dates: start: 20060531
  9. REMICADE [Suspect]
     Route: 042
     Dates: start: 20061208
  10. REMICADE [Suspect]
     Route: 042
     Dates: start: 20060411

REACTIONS (6)
  - PREMATURE DELIVERY [None]
  - FOETAL GROWTH RESTRICTION [None]
  - CROHN'S DISEASE [None]
  - MATERNAL EXPOSURE DURING PREGNANCY [None]
  - PRE-ECLAMPSIA [None]
  - HYPERTENSION [None]
